FAERS Safety Report 5689709-X (Version None)
Quarter: 2008Q1

REPORT INFORMATION
  Report Type: 
  Country: None (occurrence: None)
  Receive Date: 20080328
  Receipt Date: 20080320
  Transmission Date: 20080703
  Serious: Yes (Other)
  Sender: FDA-Public Use
  Company Number: 231535J08USA

PATIENT
  Age: 62 Year
  Sex: Female
  Weight: 77.1115 kg

DRUGS (8)
  1. REBIF [Suspect]
     Indication: MULTIPLE SCLEROSIS
     Dosage: 44 MCG, 3 IN 1 WEEKS, SUBCUTANEOUS
     Route: 058
     Dates: start: 20070709
  2. TYLENOL (COTYLENOL) [Concomitant]
  3. TRAMADOL (TRAMADOL /00599201/) [Concomitant]
  4. LYRICA [Concomitant]
  5. FLEXERIL [Concomitant]
  6. BACLOFEN [Concomitant]
  7. PAXIL [Concomitant]
  8. NEXIUM [Concomitant]

REACTIONS (3)
  - BREAST CANCER FEMALE [None]
  - BREAST CANCER METASTATIC [None]
  - METASTASES TO LYMPH NODES [None]
